FAERS Safety Report 22645986 (Version 1)
Quarter: 2023Q2

REPORT INFORMATION
  Report Type: Spontaneous
  Country: US (occurrence: US)
  Receive Date: 20230627
  Receipt Date: 20230627
  Transmission Date: 20230721
  Serious: Yes (Hospitalization)
  Sender: FDA-Public Use
  Company Number: US-NOVOPROD-1082902

PATIENT
  Sex: Female

DRUGS (1)
  1. OZEMPIC [Suspect]
     Active Substance: SEMAGLUTIDE
     Indication: Metabolic disorder
     Dosage: 0.50MG
     Route: 058
     Dates: start: 20230505, end: 20230616

REACTIONS (2)
  - Dehydration [Recovering/Resolving]
  - Product use in unapproved indication [Unknown]
